FAERS Safety Report 4450784-1 (Version None)
Quarter: 2004Q3

REPORT INFORMATION
  Report Type: 
  Country: None (occurrence: None)
  Receive Date: 20040913
  Receipt Date: 20040525
  Transmission Date: 20050211
  Serious: No
  Sender: FDA-Public Use
  Company Number: 2004-BP-04131BP(0)

PATIENT
  Age: 70 Year
  Sex: Female

DRUGS (10)
  1. SPIRIVA [Suspect]
     Indication: CHRONIC OBSTRUCTIVE AIRWAYS DISEASE
     Dosage: 18 MCG (18 MCG), IH
     Dates: start: 20040511
  2. ADVAIR (SERETIDE MITE) [Concomitant]
  3. ALBUTEROL [Concomitant]
  4. THEOPHYLLINE [Concomitant]
  5. PREDNISONE [Concomitant]
  6. RANITIDINE HCL [Concomitant]
  7. OXYGEN (OXYGEN) [Concomitant]
  8. ATIVAN [Concomitant]
  9. ASPIRIN [Concomitant]
  10. FOSAMAX [Concomitant]

REACTIONS (1)
  - DYSPNOEA [None]
